FAERS Safety Report 7263243-8 (Version None)
Quarter: 2011Q1

REPORT INFORMATION
  Report Type: 
  Country: None (occurrence: None)
  Receive Date: 20110130
  Receipt Date: 20101011
  Transmission Date: 20110831
  Serious: No
  Sender: FDA-Public Use
  Company Number: US-ABBOTT-10P-163-0678288-00

PATIENT
  Sex: Male
  Weight: 78.088 kg

DRUGS (5)
  1. HUMIRA [Suspect]
     Indication: CROHN'S DISEASE
     Dates: start: 20080101, end: 20100601
  2. NEBUMATONE [Concomitant]
     Indication: CROHN'S DISEASE
  3. HYDROCODONE [Concomitant]
     Indication: PAIN
  4. HUMIRA [Suspect]
     Indication: RHEUMATOID ARTHRITIS
     Dates: start: 20101001
  5. NIFEDIPINE [Concomitant]
     Indication: BLOOD PRESSURE

REACTIONS (4)
  - DIARRHOEA [None]
  - MUSCLE SPASMS [None]
  - INSOMNIA [None]
  - CROHN'S DISEASE [None]
